FAERS Safety Report 18567068 (Version 19)
Quarter: 2022Q2

REPORT INFORMATION
  Report Type: Spontaneous
  Country: GB (occurrence: GB)
  Receive Date: 20201202
  Receipt Date: 20220628
  Transmission Date: 20220720
  Serious: Yes (Hospitalization, Other)
  Sender: FDA-Public Use
  Company Number: None

PATIENT

DRUGS (15)
  1. PREDNISOLONE [Suspect]
     Active Substance: PREDNISOLONE
     Indication: Vasculitis
     Dosage: 60 MG, QD (IN THE MORNING, WITH PLANNED WEANING REGIME)
     Route: 065
  2. CLOPIDOGREL BISULFATE [Suspect]
     Active Substance: CLOPIDOGREL BISULFATE
     Indication: Transient ischaemic attack
     Dosage: 75 MG, QD,  IN THE MORNING
     Route: 065
  3. ELIQUIS [Suspect]
     Active Substance: APIXABAN
     Indication: Pulmonary embolism
     Dosage: 10 MG, QD
     Route: 065
  4. PREDNISOLONE [Suspect]
     Active Substance: PREDNISOLONE
     Indication: Vasculitis
     Dosage: 60 MG, QD  IN THE MORNING, WITH PLANNED WEANING REGIME
  5. DARBEPOETIN ALFA [Concomitant]
     Active Substance: DARBEPOETIN ALFA
     Indication: Product used for unknown indication
     Dosage: 30 UG, WEEKLY  (ON TUESDAYS)
     Route: 058
  6. BISOPROLOL [Concomitant]
     Active Substance: BISOPROLOL
     Indication: Transient ischaemic attack
     Dosage: 3.75 MG, QD  IN THE MORNING
     Route: 065
  7. CYCLOPHOSPHAMIDE [Concomitant]
     Active Substance: CYCLOPHOSPHAMIDE
     Indication: Product used for unknown indication
     Dosage: 100 MG, QD (ONCE IN THE MORNING FOR A FURTHER DAY THEN STOP)
     Route: 065
  8. ACYCLOVIR [Concomitant]
     Active Substance: ACYCLOVIR
     Indication: Product used for unknown indication
     Dosage: 400 MG, QD (IN THE MORNING)
     Route: 065
  9. CALCIUM CARBONATE\CHOLECALCIFEROL [Concomitant]
     Active Substance: CALCIUM CARBONATE\CHOLECALCIFEROL
     Dosage: 2 DOSAGE FORM, QD
     Route: 065
  10. COTRIMOXAZOLE [Concomitant]
     Active Substance: SULFAMETHOXAZOLE\TRIMETHOPRIM
     Indication: Product used for unknown indication
     Dosage: 480 MILLIGRAM, BID; (80MG/400MG, ON MONDAY, WEDNESDAY AND FRIDAY)
     Route: 048
  11. COTRIMOXAZOLE [Concomitant]
     Active Substance: SULFAMETHOXAZOLE\TRIMETHOPRIM
     Dosage: 80 MG, 80MG/400MG, ON MONDAY, WEDNESDAY AND FRIDAY
     Route: 048
  12. LANSOPRAZOLE [Concomitant]
     Active Substance: LANSOPRAZOLE
     Indication: Product used for unknown indication
     Dosage: 30 MG, QD, (IN THE MORNING)
     Route: 065
  13. INSULIN ASPART [Concomitant]
     Active Substance: INSULIN ASPART
     Indication: Product used for unknown indication
     Dosage: 60 IU, QD (32 UNITS IN THE MORNING AND 28 UNITS AT TEATIME ), NOVOMIX 30 FLEXPEN 100UNITS/ML 3ML PRE
     Route: 065
  14. FLUCONAZOLE [Concomitant]
     Active Substance: FLUCONAZOLE
     Indication: Product used for unknown indication
     Dosage: 50 MG, QD (IN THE MORNING)
     Route: 065
  15. CLOBETASONE [Concomitant]
     Active Substance: CLOBETASONE
     Indication: Product used for unknown indication
     Dosage: 2 DOSAGE FORM, QD
     Route: 065

REACTIONS (8)
  - Melaena [Unknown]
  - Transient ischaemic attack [Unknown]
  - Amaurosis fugax [Unknown]
  - Circulatory collapse [Unknown]
  - Duodenal ulcer haemorrhage [Unknown]
  - Pulmonary embolism [Unknown]
  - Upper gastrointestinal haemorrhage [Unknown]
  - Drug ineffective [Unknown]
